FAERS Safety Report 18382871 (Version 1)
Quarter: 2020Q4

REPORT INFORMATION
  Report Type: Spontaneous
  Country: FR (occurrence: FR)
  Receive Date: 20201014
  Receipt Date: 20201014
  Transmission Date: 20210114
  Serious: Yes (Other)
  Sender: FDA-Public Use
  Company Number: FR-BAYER-2020-214423

PATIENT
  Age: 80 Year
  Sex: Female
  Weight: 63 kg

DRUGS (2)
  1. REVLIMID [Suspect]
     Active Substance: LENALIDOMIDE
     Indication: PLASMA CELL MYELOMA
     Dosage: 25 MG/DAY 3 FOR 4 WEEKS
     Route: 048
     Dates: start: 20200805, end: 20200914
  2. GADOVIST [Suspect]
     Active Substance: GADOBUTROL
     Indication: MAGNETIC RESONANCE IMAGING
     Dosage: 6 ML, ONCE
     Route: 042
     Dates: start: 20200908

REACTIONS (3)
  - Pruritus [Not Recovered/Not Resolved]
  - Pyrexia [Recovered/Resolved]
  - Rash [Not Recovered/Not Resolved]

NARRATIVE: CASE EVENT DATE: 20200909
